FAERS Safety Report 4794453-7 (Version None)
Quarter: 2005Q4

REPORT INFORMATION
  Report Type: 
  Country: None (occurrence: None)
  Receive Date: 20051011
  Receipt Date: 20050930
  Transmission Date: 20060501
  Serious: Yes (Death)
  Sender: FDA-Public Use
  Company Number: US-BRISTOL-MYERS SQUIBB COMPANY-13127964

PATIENT
  Sex: Female

DRUGS (2)
  1. AVAPRO [Suspect]
  2. GLUCOPHAGE [Suspect]

REACTIONS (1)
  - DEATH [None]
